FAERS Safety Report 13678525 (Version 2)
Quarter: 2017Q2

REPORT INFORMATION
  Report Type: Spontaneous
  Country: US (occurrence: US)
  Receive Date: 20170622
  Receipt Date: 20170628
  Transmission Date: 20170830
  Serious: Yes (Death, Other)
  Sender: FDA-Public Use
  Company Number: US-PFIZER INC-2017265288

PATIENT
  Age: 60 Year
  Sex: Male
  Weight: 56.69 kg

DRUGS (2)
  1. INLYTA [Suspect]
     Active Substance: AXITINIB
     Indication: METASTATIC RENAL CELL CARCINOMA
     Dosage: 5 MG, 2X/DAY
     Route: 048
     Dates: start: 20170415
  2. INLYTA [Suspect]
     Active Substance: AXITINIB
     Dosage: 5 MG, 2X/DAY
     Route: 048
     Dates: end: 201706

REACTIONS (3)
  - Pulmonary congestion [Recovering/Resolving]
  - Drug dose omission [Unknown]
  - Death [Fatal]

NARRATIVE: CASE EVENT DATE: 20170619
